FAERS Safety Report 6240537-6 (Version None)
Quarter: 2009Q2

REPORT INFORMATION
  Report Type: 
  Country: None (occurrence: None)
  Receive Date: 20090623
  Receipt Date: 20080904
  Transmission Date: 20091009
  Serious: No
  Sender: FDA-Public Use
  Company Number: US-ASTRAZENECA-2008UW18218

PATIENT
  Age: 60 Year
  Sex: Male

DRUGS (4)
  1. PULMICORT FLEXHALER [Suspect]
     Indication: ASTHMA
     Route: 055
     Dates: start: 20080801
  2. QVAR 40 [Concomitant]
  3. FLORADIL [Concomitant]
  4. ALBUTEROL [Concomitant]

REACTIONS (2)
  - DRUG INEFFECTIVE [None]
  - TREATMENT NONCOMPLIANCE [None]
